FAERS Safety Report 14430522 (Version 4)
Quarter: 2018Q2

REPORT INFORMATION
  Report Type: Report from Study
  Country: US (occurrence: US)
  Receive Date: 20180124
  Receipt Date: 20180626
  Transmission Date: 20180711
  Serious: Yes (Other)
  Sender: FDA-Public Use
  Company Number: US-AMGEN-USASL2018008281

PATIENT
  Age: 67 Year
  Sex: Male

DRUGS (2)
  1. REPATHA [Suspect]
     Active Substance: EVOLOCUMAB
     Indication: HYPERCHOLESTEROLAEMIA
     Dosage: 140 MG, Q2WK
     Route: 065
     Dates: start: 2017
  2. REPATHA [Suspect]
     Active Substance: EVOLOCUMAB
     Indication: BLOOD CHOLESTEROL ABNORMAL
     Dosage: 140 MG, QMO
     Route: 065

REACTIONS (20)
  - Pneumonia [Unknown]
  - Cough [Recovered/Resolved]
  - Bronchitis [Unknown]
  - Gouty arthritis [Unknown]
  - Chronic kidney disease [Unknown]
  - Low density lipoprotein decreased [Unknown]
  - Nasopharyngitis [Unknown]
  - Injection site swelling [Recovered/Resolved]
  - Dizziness [Recovered/Resolved]
  - Blood pressure increased [Unknown]
  - Pyrexia [Unknown]
  - Chills [Unknown]
  - Off label use [Unknown]
  - Food allergy [Unknown]
  - Dysgraphia [Unknown]
  - Lower respiratory tract infection [Unknown]
  - Sinusitis [Unknown]
  - Pain [Recovered/Resolved]
  - Disorientation [Unknown]
  - Influenza [Unknown]

NARRATIVE: CASE EVENT DATE: 201711
